FAERS Safety Report 7402582-4 (Version None)
Quarter: 2011Q2

REPORT INFORMATION
  Report Type: 
  Country: None (occurrence: None)
  Receive Date: 20110408
  Receipt Date: 20110330
  Transmission Date: 20111010
  Serious: Yes (Other)
  Sender: FDA-Public Use
  Company Number: BR-SANOFI-AVENTIS-2010SA073603

PATIENT
  Age: 78 Year
  Sex: Female

DRUGS (7)
  1. FORTEN [Concomitant]
     Indication: OSTEOPOROSIS
     Route: 058
     Dates: start: 20100717
  2. LANTUS [Suspect]
     Route: 058
     Dates: start: 20110101
  3. METFORMIN HCL [Concomitant]
     Route: 048
  4. INSULIN GLULISINE [Concomitant]
     Route: 058
     Dates: start: 20090320
  5. LANTUS [Suspect]
     Indication: TYPE 2 DIABETES MELLITUS
     Route: 058
     Dates: start: 20090320
  6. CALCIUM CARBONATE [Concomitant]
     Indication: OSTEOPOROSIS
     Route: 048
  7. PREDNISONE [Concomitant]

REACTIONS (2)
  - NON-HODGKIN'S LYMPHOMA [None]
  - ANAEMIA [None]
